FAERS Safety Report 5147406-3 (Version None)
Quarter: 2006Q4

REPORT INFORMATION
  Report Type: 
  Country: None (occurrence: None)
  Receive Date: 20061103
  Receipt Date: 20061024
  Transmission Date: 20070319
  Serious: Yes (Other)
  Sender: FDA-Public Use
  Company Number: HQWYE560925OCT06

PATIENT
  Age: 62 Year
  Sex: Female
  Weight: 71.73 kg

DRUGS (4)
  1. PREMARIN [Suspect]
     Indication: HORMONE REPLACEMENT THERAPY
     Dosage: 0.625 MG 1X PER 1 DAY, ORAL
     Route: 048
     Dates: start: 19830101, end: 20060101
  2. ATIVAN [Concomitant]
  3. MOBIC [Concomitant]
  4. ATENOLOL [Concomitant]

REACTIONS (6)
  - BACK DISORDER [None]
  - FALL [None]
  - HOT FLUSH [None]
  - NIGHT SWEATS [None]
  - TRANSIENT ISCHAEMIC ATTACK [None]
  - VULVOVAGINAL DRYNESS [None]
